FAERS Safety Report 17594490 (Version 2)
Quarter: 2020Q2

REPORT INFORMATION
  Report Type: Spontaneous
  Country: MX (occurrence: MX)
  Receive Date: 20200327
  Receipt Date: 20200402
  Transmission Date: 20200713
  Serious: Yes (Death, Hospitalization, Other)
  Sender: FDA-Public Use
  Company Number: MX-GILEAD-2020-0456908

PATIENT
  Age: 42 Year
  Sex: Male

DRUGS (4)
  1. DAFLON [DIOSMIN] [Concomitant]
     Active Substance: DIOSMIN
  2. MELATONINE [Concomitant]
     Active Substance: MELATONIN
  3. DICLOFENAC [Concomitant]
     Active Substance: DICLOFENAC
  4. BIKTARVY [Suspect]
     Active Substance: BICTEGRAVIR SODIUM\EMTRICITABINE\TENOFOVIR ALAFENAMIDE FUMARATE
     Indication: HIV INFECTION
     Dosage: 1 DOSAGE FORM, ONCE
     Route: 048
     Dates: start: 201912, end: 20200321

REACTIONS (5)
  - Cerebral haemorrhage [Not Recovered/Not Resolved]
  - Central nervous system haemorrhage [Not Recovered/Not Resolved]
  - Thrombocytopenia [Fatal]
  - Melaena [Not Recovered/Not Resolved]
  - Haematemesis [Not Recovered/Not Resolved]

NARRATIVE: CASE EVENT DATE: 202002
